FAERS Safety Report 4560871-5 (Version None)
Quarter: 2005Q1

REPORT INFORMATION
  Report Type: 
  Country: None (occurrence: None)
  Receive Date: 20050121
  Receipt Date: 20050110
  Transmission Date: 20050727
  Serious: Yes (Death)
  Sender: FDA-Public Use
  Company Number: MK200501-0090-1

PATIENT
  Age: 36 Year
  Sex: Male

DRUGS (1)
  1. METHADOSE [Suspect]
     Indication: BACK PAIN
     Dosage: 160 MG ONCE PO
     Route: 048
     Dates: start: 20041218, end: 20041218

REACTIONS (2)
  - OVERDOSE [None]
  - RESPIRATORY ARREST [None]
